FAERS Safety Report 16956181 (Version 1)
Quarter: 2019Q4

REPORT INFORMATION
  Report Type: Spontaneous
  Country: DE (occurrence: DE)
  Receive Date: 20191024
  Receipt Date: 20191024
  Transmission Date: 20200122
  Serious: Yes (Hospitalization)
  Sender: FDA-Public Use
  Company Number: DE-SUN PHARMACEUTICAL INDUSTRIES LTD-2018R1-199525

PATIENT
  Age: 86 Year
  Sex: Female

DRUGS (2)
  1. DEXAMETHASONE. [Suspect]
     Active Substance: DEXAMETHASONE
     Indication: NEPHROTIC SYNDROME
     Dosage: 10 MILLIGRAM, WEEKLY
     Route: 048
  2. BORTEZOMIB. [Suspect]
     Active Substance: BORTEZOMIB
     Indication: NEPHROTIC SYNDROME
     Dosage: 1.3 MG/M^2
     Route: 058

REACTIONS (5)
  - Infection [Unknown]
  - Dyspnoea [Unknown]
  - Drug intolerance [Unknown]
  - Fluid overload [Unknown]
  - Condition aggravated [Unknown]
